FAERS Safety Report 8162605-4 (Version None)
Quarter: 2012Q1

REPORT INFORMATION
  Report Type: 
  Country: None (occurrence: None)
  Receive Date: 20120224
  Receipt Date: 20120216
  Transmission Date: 20120608
  Serious: Yes (Hospitalization)
  Sender: FDA-Public Use
  Company Number: FR-JNJFOC-20120209414

PATIENT
  Sex: Female

DRUGS (8)
  1. NOZINAN [Suspect]
     Indication: PRODUCT USED FOR UNKNOWN INDICATION
     Route: 048
     Dates: start: 20120116, end: 20120116
  2. ACETAMINOPHEN [Concomitant]
     Route: 065
  3. HALDOL [Suspect]
     Indication: PRODUCT USED FOR UNKNOWN INDICATION
     Route: 048
     Dates: start: 20120116, end: 20120116
  4. ATACAND [Concomitant]
     Route: 065
  5. EXELON [Concomitant]
     Route: 065
  6. CLONAZEPAM [Suspect]
     Indication: PRODUCT USED FOR UNKNOWN INDICATION
     Route: 048
     Dates: start: 20120116, end: 20120116
  7. BISOPROLOL FUMARATE [Concomitant]
     Route: 065
  8. IMOVANE [Concomitant]
     Route: 065

REACTIONS (2)
  - ACCIDENTAL EXPOSURE [None]
  - SOMNOLENCE [None]
